FAERS Safety Report 9926952 (Version 1)
Quarter: 2014Q1

REPORT INFORMATION
  Report Type: Spontaneous
  Country: BR (occurrence: BR)
  Receive Date: 20140226
  Receipt Date: 20140226
  Transmission Date: 20141002
  Serious: Yes (Hospitalization, Other)
  Sender: FDA-Public Use
  Company Number: PHHY2014BR021871

PATIENT
  Sex: Male
  Weight: 100 kg

DRUGS (1)
  1. DIOVAN TRIPLE [Suspect]
     Dosage: 1 DF (160MG VALS/5MG AMLO/12.5MG HCT), UNK

REACTIONS (1)
  - Gastrointestinal carcinoma [Recovered/Resolved]
